FAERS Safety Report 9244207 (Version 1)
Quarter: 2013Q1

REPORT INFORMATION
  Report Type: Spontaneous
  Country: US (occurrence: None)
  Receive Date: 20121123
  Receipt Date: 20121123
  Transmission Date: 20140127
  Serious: No
  Sender: FDA-Public Use
  Company Number: 363165

PATIENT
  Age: 60 Year
  Sex: Female

DRUGS (11)
  1. VICTOZA [Suspect]
     Indication: TYPE 2 DIABETES MELLITUS
     Route: 058
     Dates: start: 201210
  2. CYMBALTA (DULOXETINE HYDROCHLORIDE) [Concomitant]
  3. HYDROCODONE W/ ACETAMINOPHEN (HYDROCODONE BITARTRATE, PARACETAMOL) [Concomitant]
  4. LUNESTA (ESZOPICLONE) [Concomitant]
  5. METFORMIN (METFORMIN) [Concomitant]
  6. OXYCODONE (OXYCODONE) [Concomitant]
  7. PLAVIX (CLOPIDOGREL BISULFATE) [Concomitant]
  8. RANITIDINE (RANITIDINE) [Concomitant]
  9. SENSIPAR (CINACALCET HYDROCHLORIDE) [Concomitant]
  10. TOPAMAX (TOPIRAMATE) [Concomitant]
  11. WELLBUTRIN XL (BUPROPION HYDROCHLORIDE)(TABLETS)(BUPROPION HYDROCHLORIDE) [Concomitant]

REACTIONS (3)
  - Vomiting [None]
  - Diarrhoea [None]
  - Dehydration [None]
